FAERS Safety Report 12364599 (Version 1)
Quarter: 2016Q2

REPORT INFORMATION
  Report Type: Spontaneous
  Country: US (occurrence: None)
  Receive Date: 20160512
  Receipt Date: 20160512
  Transmission Date: 20160815
  Serious: Yes (Life-Threatening, Other)
  Sender: FDA-Public Use
  Company Number: None

PATIENT
  Age: 58 Year
  Sex: Male
  Weight: 65.77 kg

DRUGS (5)
  1. ATENOLOL TABLETS, 25 MG [Suspect]
     Active Substance: ATENOLOL
     Indication: HEART RATE IRREGULAR
     Route: 048
     Dates: start: 20160311, end: 20160505
  2. LIPITOR [Concomitant]
     Active Substance: ATORVASTATIN CALCIUM
  3. ASPIRIN. [Concomitant]
     Active Substance: ASPIRIN
  4. ATENOLOL TABLETS, 25 MG [Suspect]
     Active Substance: ATENOLOL
     Indication: HYPERTENSION
     Route: 048
     Dates: start: 20160311, end: 20160505
  5. CENTRUM [Concomitant]
     Active Substance: VITAMINS

REACTIONS (9)
  - Fatigue [None]
  - Hypertension [None]
  - Blood pressure fluctuation [None]
  - Stress [None]
  - Vertigo [None]
  - Head discomfort [None]
  - Balance disorder [None]
  - Fall [None]
  - Dizziness [None]

NARRATIVE: CASE EVENT DATE: 20160311
